FAERS Safety Report 5530584-1 (Version None)
Quarter: 2007Q4

REPORT INFORMATION
  Report Type: 
  Country: None (occurrence: None)
  Receive Date: 20071130
  Receipt Date: 20071120
  Transmission Date: 20080405
  Serious: Yes (Other)
  Sender: FDA-Public Use
  Company Number: GB-JNJFOC-20071001255

PATIENT
  Sex: Female

DRUGS (1)
  1. RETIN-A [Suspect]
     Indication: DRUG USE FOR UNKNOWN INDICATION
     Dosage: STOPPED USING THE PRODUCT ONE WEEK PRIOR TO THIS REPORT
     Route: 061

REACTIONS (2)
  - ABORTION SPONTANEOUS [None]
  - DRUG EXPOSURE DURING PREGNANCY [None]
